FAERS Safety Report 23390130 (Version 4)
Quarter: 2024Q3

REPORT INFORMATION
  Report Type: Spontaneous
  Country: US (occurrence: US)
  Receive Date: 20240111
  Receipt Date: 20240705
  Transmission Date: 20241017
  Serious: No
  Sender: DR REDDYS
  Company Number: US-drreddys-SPO/USA/23/0187725

PATIENT
  Age: 3 Year
  Sex: Female
  Weight: 14.7 kg

DRUGS (1)
  1. JAVYGTOR [Suspect]
     Active Substance: SAPROPTERIN DIHYDROCHLORIDE
     Indication: Phenylketonuria
     Route: 048
     Dates: start: 20231128

REACTIONS (1)
  - Diarrhoea [Unknown]

NARRATIVE: CASE EVENT DATE: 20231128
